FAERS Safety Report 20981602 (Version 3)
Quarter: 2022Q3

REPORT INFORMATION
  Report Type: Spontaneous
  Country: CA (occurrence: CA)
  Receive Date: 20220620
  Receipt Date: 20220718
  Transmission Date: 20221027
  Serious: Yes (Other)
  Sender: FDA-Public Use
  Company Number: CA-BAYER-2022A085668

PATIENT
  Age: 35 Year
  Sex: Female

DRUGS (1)
  1. MIRENA [Suspect]
     Active Substance: LEVONORGESTREL
     Indication: Contraception
     Dosage: 20?G/DAY
     Route: 015
     Dates: start: 2020, end: 20220616

REACTIONS (5)
  - Device breakage [None]
  - Complication of device removal [None]
  - Device difficult to use [None]
  - Pelvic pain [None]
  - Menstruation irregular [None]

NARRATIVE: CASE EVENT DATE: 20200101
